FAERS Safety Report 5407303-2 (Version None)
Quarter: 2007Q3

REPORT INFORMATION
  Report Type: 
  Country: None (occurrence: None)
  Receive Date: 20070807
  Receipt Date: 20070727
  Transmission Date: 20080115
  Serious: Yes (Other)
  Sender: FDA-Public Use
  Company Number: GB-ROCHE-442478

PATIENT
  Sex: Female
  Weight: 3.9 kg

DRUGS (3)
  1. ISOTRETINOIN [Suspect]
     Indication: ACNE
     Dates: start: 20051213, end: 20051220
  2. ISOTRETINOIN [Suspect]
     Dates: end: 20051213
  3. MICROGYNON [Concomitant]
     Indication: CONTRACEPTION
     Dates: end: 20060101

REACTIONS (2)
  - NO ADVERSE REACTION [None]
  - NORMAL NEWBORN [None]
